FAERS Safety Report 15015360 (Version 1)
Quarter: 2018Q2

REPORT INFORMATION
  Report Type: Spontaneous
  Country: US (occurrence: US)
  Receive Date: 20180615
  Receipt Date: 20180615
  Transmission Date: 20180711
  Serious: No
  Sender: FDA-Public Use
  Company Number: US-GLAXOSMITHKLINE-US2018102963

PATIENT
  Age: 81 Year
  Sex: Male

DRUGS (1)
  1. ABREVA [Suspect]
     Active Substance: DOCOSANOL
     Indication: PRODUCT USED FOR UNKNOWN INDICATION
     Dosage: UNK, 2 OR 3 TIMES A DAY

REACTIONS (3)
  - Incorrect drug administration duration [Unknown]
  - Application site pain [Unknown]
  - Inappropriate schedule of drug administration [Unknown]
